FAERS Safety Report 6628853-7 (Version None)
Quarter: 2010Q1

REPORT INFORMATION
  Report Type: 
  Country: None (occurrence: None)
  Receive Date: 20100311
  Receipt Date: 20100302
  Transmission Date: 20100710
  Serious: Yes (Hospitalization, Other)
  Sender: FDA-Public Use
  Company Number: FR-ELI_LILLY_AND_COMPANY-FR201003000454

PATIENT
  Sex: Female

DRUGS (2)
  1. ALIMTA [Suspect]
     Indication: LUNG ADENOCARCINOMA
     Dosage: 825 MG, UNKNOWN
     Route: 042
     Dates: start: 20091201
  2. CISPLATIN [Concomitant]
     Indication: LUNG ADENOCARCINOMA METASTATIC
     Dosage: 125 MG, UNKNOWN
     Route: 042
     Dates: start: 20091201

REACTIONS (2)
  - PELVIC VENOUS THROMBOSIS [None]
  - PERIPHERAL ISCHAEMIA [None]
